FAERS Safety Report 5854330-7 (Version None)
Quarter: 2008Q3

REPORT INFORMATION
  Report Type: 
  Country: None (occurrence: None)
  Receive Date: 20080822
  Receipt Date: 20080821
  Transmission Date: 20090109
  Serious: Yes (Death)
  Sender: FDA-Public Use
  Company Number: US-BOEHRINGER INGELHEIM GMBH, GERMANY-2008-BP-13182BP

PATIENT
  Sex: Male

DRUGS (3)
  1. DULCOLAX [Suspect]
     Indication: CONSTIPATION
     Route: 048
     Dates: start: 20080430, end: 20080430
  2. MORPHINE [Suspect]
  3. CHEMO [Concomitant]
     Dates: start: 20080413, end: 20080501

REACTIONS (2)
  - DEATH [None]
  - RECTAL HAEMORRHAGE [None]
